FAERS Safety Report 8579216-9 (Version None)
Quarter: 2012Q3

REPORT INFORMATION
  Report Type: 
  Country: None (occurrence: None)
  Receive Date: 20120808
  Receipt Date: 20120730
  Transmission Date: 20120928
  Serious: Yes (Hospitalization)
  Sender: FDA-Public Use
  Company Number: TH-ROCHE-1094707

PATIENT
  Sex: Female

DRUGS (4)
  1. PEGASYS [Suspect]
     Indication: HEPATITIS C
     Route: 058
     Dates: start: 20111229, end: 20120726
  2. COPEGUS [Suspect]
     Route: 048
     Dates: start: 20120726
  3. COPEGUS [Suspect]
     Indication: HEPATITIS C
     Route: 048
     Dates: start: 20111229, end: 20120723
  4. BLINDED ALISPORIVIR [Suspect]
     Indication: HEPATITIS C
     Dosage: SOFT GELATIN CAPSULE
     Route: 048
     Dates: start: 20111229, end: 20120418

REACTIONS (1)
  - BRAIN MASS [None]
